FAERS Safety Report 11660272 (Version 1)
Quarter: 2015Q4

REPORT INFORMATION
  Report Type: Spontaneous
  Country: US (occurrence: US)
  Receive Date: 20151026
  Receipt Date: 20151026
  Transmission Date: 20160304
  Serious: No
  Sender: FDA-Public Use
  Company Number: US-MEDA-2011030119

PATIENT
  Age: 79 Year
  Sex: Male
  Weight: 82 kg

DRUGS (4)
  1. CRESTOR [Concomitant]
     Active Substance: ROSUVASTATIN CALCIUM
     Indication: CARDIAC DISORDER
  2. ASPIRIN. [Concomitant]
     Active Substance: ASPIRIN
     Indication: CARDIAC DISORDER
  3. CEFDINIR. [Suspect]
     Active Substance: CEFDINIR
     Indication: RHINORRHOEA
     Route: 048
     Dates: start: 20110322
  4. ASTEPRO [Suspect]
     Active Substance: AZELASTINE HYDROCHLORIDE
     Indication: RHINORRHOEA
     Dates: start: 20110322

REACTIONS (4)
  - Chest pain [Not Recovered/Not Resolved]
  - Hyperhidrosis [Not Recovered/Not Resolved]
  - Dizziness [Not Recovered/Not Resolved]
  - Drug ineffective [Not Recovered/Not Resolved]

NARRATIVE: CASE EVENT DATE: 20110322
